FAERS Safety Report 5005496-2 (Version None)
Quarter: 2006Q2

REPORT INFORMATION
  Report Type: 
  Country: None (occurrence: None)
  Receive Date: 20060518
  Receipt Date: 20060227
  Transmission Date: 20061013
  Serious: Yes (Hospitalization)
  Sender: FDA-Public Use
  Company Number: US-MERCK-0603USA00236

PATIENT
  Age: 55 Year
  Sex: Male
  Weight: 114 kg

DRUGS (15)
  1. VIOXX [Suspect]
     Indication: ARTHRITIS
     Route: 048
     Dates: start: 20010123, end: 20031128
  2. CELEBREX [Concomitant]
     Indication: ARTHRITIS
     Route: 065
     Dates: start: 20030814, end: 20040209
  3. HYDROCODONE BITARTRATE [Concomitant]
     Route: 065
     Dates: start: 20010111, end: 20021212
  4. ENALAPRIL MALEATE [Concomitant]
     Route: 065
  5. VASERETIC [Concomitant]
     Route: 065
  6. AMOXICILLIN [Concomitant]
     Route: 065
  7. PIROXICAM MSD [Concomitant]
     Route: 065
     Dates: start: 20000722, end: 20010203
  8. PHENTERMINE [Concomitant]
     Route: 065
  9. GUAIFENEX [Concomitant]
     Route: 065
  10. MERIDIA [Concomitant]
     Indication: WEIGHT DECREASED
     Route: 065
     Dates: start: 20020918, end: 20031112
  11. INDOMETHACIN [Concomitant]
     Route: 065
     Dates: start: 20001219, end: 20021122
  12. ALTACE [Concomitant]
     Indication: HYPERTENSION
     Route: 065
     Dates: start: 20010714, end: 20050207
  13. NORVASC [Concomitant]
     Indication: HYPERTENSION
     Route: 065
     Dates: start: 20021030, end: 20040210
  14. ALLOPURINOL [Concomitant]
     Indication: GOUT
     Route: 065
     Dates: start: 20030707
  15. ALLOPURINOL [Concomitant]
     Indication: PAIN
     Route: 065
     Dates: start: 20030707

REACTIONS (10)
  - BLOOD CHOLESTEROL INCREASED [None]
  - CARDIAC DISORDER [None]
  - DIABETES MELLITUS [None]
  - EPISTAXIS [None]
  - GASTRIC DISORDER [None]
  - JOINT INJURY [None]
  - MYOCARDIAL INFARCTION [None]
  - OEDEMA [None]
  - ROAD TRAFFIC ACCIDENT [None]
  - ULCER HAEMORRHAGE [None]
